FAERS Safety Report 7417992-9 (Version None)
Quarter: 2011Q2

REPORT INFORMATION
  Report Type: 
  Country: None (occurrence: None)
  Receive Date: 20110415
  Receipt Date: 20110405
  Transmission Date: 20111010
  Serious: Yes (Hospitalization)
  Sender: FDA-Public Use
  Company Number: US-ROCHE-760971

PATIENT
  Age: 54 Year
  Sex: Male
  Weight: 72 kg

DRUGS (23)
  1. PEGINTERFERON ALFA-2A [Suspect]
     Route: 058
     Dates: start: 20100807, end: 20100922
  2. CHLORMEZANONE [Concomitant]
     Indication: INSOMNIA
     Dates: start: 20100803, end: 20101207
  3. BISMUTH SUBSALICYLATE [Concomitant]
     Dates: start: 20100903, end: 20100905
  4. RIBAVIRIN [Suspect]
     Route: 065
     Dates: start: 20100528
  5. CITALOPRAM [Concomitant]
     Indication: DEPRESSION
  6. PROPRANOLOL HYDROCHLORIDE [Concomitant]
     Dates: start: 20101208
  7. PEGINTERFERON ALFA-2A [Suspect]
     Route: 058
     Dates: start: 20100528, end: 20100806
  8. IBUPROFEN [Concomitant]
     Dates: start: 20100811
  9. GABAPENTIN [Concomitant]
     Dates: start: 20100819
  10. BACTROBAN [Concomitant]
     Indication: WOUND INFECTION
     Dates: start: 20101208
  11. DIPHENHYDRAMINE HYDROCHLORIDE [Concomitant]
     Indication: INSOMNIA
     Dosage: DRUG REPORTED: DOZOL, AS REQUIRED
     Dates: start: 20100621, end: 20100621
  12. RITONAVIR [Suspect]
     Dosage: FORM: SOFT GELATIN CAPSULES
     Route: 048
     Dates: start: 20100525, end: 20100818
  13. VICODIN [Concomitant]
     Dosage: STRENGTH 325/5
     Dates: start: 20100819
  14. ZOLPIDEM TARTRATE [Concomitant]
     Indication: INSOMNIA
     Dates: start: 20101209, end: 20110104
  15. CEPHALEXIN MONOHYDRATE [Concomitant]
     Dosage: INDICATION:RIGHT AXILLA
     Dates: start: 20100625, end: 20100704
  16. HYDROCORTISONE [Concomitant]
     Dates: start: 20100915, end: 20101207
  17. BLINDED ABT-450 [Suspect]
     Route: 048
     Dates: start: 20100525, end: 20100818
  18. PARACETAMOL [Concomitant]
     Indication: HEADACHE
     Dates: start: 20100612, end: 20101201
  19. GABAPENTIN [Concomitant]
     Dates: start: 20100813, end: 20100818
  20. CEFUROXIME AXETIL [Concomitant]
     Indication: OTITIS MEDIA
     Dates: start: 20101013, end: 20101016
  21. LOCORTEN-VIOFORM [Concomitant]
     Indication: OTITIS MEDIA
     Dates: start: 20101013, end: 20101018
  22. TRIAZOLAM [Concomitant]
     Indication: INSOMNIA
     Dates: start: 20110105
  23. FLUOCINONIDE [Concomitant]
     Dates: start: 20101209

REACTIONS (2)
  - MIGRAINE [None]
  - DEHYDRATION [None]
